FAERS Safety Report 19594157 (Version 2)
Quarter: 2021Q3

REPORT INFORMATION
  Report Type: Report from Study
  Country: US (occurrence: US)
  Receive Date: 20210722
  Receipt Date: 20210819
  Transmission Date: 20211014
  Serious: Yes (Hospitalization)
  Sender: FDA-Public Use
  Company Number: US-BIOVITRUM-2021US4261

PATIENT
  Age: 60 Year
  Sex: Male

DRUGS (1)
  1. KINERET [Suspect]
     Active Substance: ANAKINRA
     Indication: PYODERMA GANGRENOSUM
     Route: 058
     Dates: start: 20190415

REACTIONS (6)
  - Red blood cell sedimentation rate increased [Unknown]
  - Rash [Recovering/Resolving]
  - Inflammation [Unknown]
  - Off label use [Not Recovered/Not Resolved]
  - Infection [Recovering/Resolving]
  - Product dose omission issue [Unknown]

NARRATIVE: CASE EVENT DATE: 20190415
